FAERS Safety Report 5199903-2 (Version None)
Quarter: 2007Q1

REPORT INFORMATION
  Report Type: 
  Country: None (occurrence: None)
  Receive Date: 20070105
  Receipt Date: 20061222
  Transmission Date: 20070707
  Serious: Yes (Other)
  Sender: FDA-Public Use
  Company Number: US-ROCHE-476801

PATIENT
  Age: 64 Year
  Sex: Male

DRUGS (8)
  1. KLONOPIN [Suspect]
     Indication: ANXIETY
     Route: 065
     Dates: start: 19960615
  2. VALIUM [Suspect]
     Indication: ANXIETY
     Route: 065
     Dates: end: 19960615
  3. PAXIL [Concomitant]
     Indication: DEPRESSION
  4. TOPROL-XL [Concomitant]
  5. ASPIRIN [Concomitant]
  6. PRAVACHOL [Concomitant]
  7. COENZYME Q10 [Concomitant]
  8. MULTIVITAMIN NOS [Concomitant]

REACTIONS (2)
  - GASTRIC CANCER [None]
  - OESOPHAGEAL DISORDER [None]
